FAERS Safety Report 7778134-3 (Version None)
Quarter: 2011Q3

REPORT INFORMATION
  Report Type: 
  Country: None (occurrence: None)
  Receive Date: 20110926
  Receipt Date: 20100702
  Transmission Date: 20111222
  Serious: No
  Sender: FDA-Public Use
  Company Number: US-MUTUAL PHARMACEUTICAL COMPANY, INC.-2010P1000118

PATIENT
  Sex: Male
  Weight: 70.31 kg

DRUGS (1)
  1. BACTRIM DS [Suspect]
     Route: 048
     Dates: start: 20100101, end: 20100101

REACTIONS (7)
  - VARICOCELE [None]
  - PAINFUL ERECTION [None]
  - SENSATION OF PRESSURE [None]
  - FATIGUE [None]
  - INFLAMMATION [None]
  - PENIS DISORDER [None]
  - LABORATORY TEST ABNORMAL [None]
